FAERS Safety Report 7352404-5 (Version None)
Quarter: 2011Q1

REPORT INFORMATION
  Report Type: 
  Country: None (occurrence: None)
  Receive Date: 20110301
  Receipt Date: 20100104
  Transmission Date: 20110831
  Serious: Yes (Other)
  Sender: FDA-Public Use
  Company Number: 219819USA

PATIENT
  Sex: Male

DRUGS (1)
  1. FLUOROURACIL [Suspect]

REACTIONS (1)
  - DISEASE PROGRESSION [None]
